FAERS Safety Report 8113662-2 (Version None)
Quarter: 2012Q1

REPORT INFORMATION
  Report Type: 
  Country: None (occurrence: None)
  Receive Date: 20120203
  Receipt Date: 20120129
  Transmission Date: 20120608
  Serious: No
  Sender: FDA-Public Use
  Company Number: US-B.I. PHARMACEUTICALS,INC./RIDGEFIELD-2012-BP-01774BP

PATIENT
  Sex: Female

DRUGS (3)
  1. AMIODARONE HCL [Concomitant]
     Indication: ATRIAL FIBRILLATION
     Dosage: 200 MG
  2. CARDIA [Concomitant]
     Indication: ATRIAL FIBRILLATION
     Dosage: 180 MG
  3. PRADAXA [Suspect]
     Indication: ATRIAL FIBRILLATION
     Dosage: 150 MG
     Route: 048
     Dates: start: 20111101

REACTIONS (1)
  - VISUAL IMPAIRMENT [None]
